FAERS Safety Report 20633276 (Version 1)
Quarter: 2022Q1

REPORT INFORMATION
  Report Type: Spontaneous
  Country: US (occurrence: None)
  Receive Date: 20220324
  Receipt Date: 20220324
  Transmission Date: 20220423
  Serious: Yes (Other)
  Sender: FDA-Public Use
  Company Number: None

PATIENT
  Age: 71 Year
  Sex: Female
  Weight: 67.5 kg

DRUGS (2)
  1. ZOLEDRONIC ACID [Suspect]
     Active Substance: ZOLEDRONIC ACID
     Indication: Osteoporosis
     Dosage: OTHER FREQUENCY : ONCE;?
     Route: 041
     Dates: start: 20220310, end: 20220310
  2. ZOLEDRONIC ACID [Concomitant]
     Active Substance: ZOLEDRONIC ACID
     Dates: start: 20220310, end: 20220310

REACTIONS (7)
  - Bone pain [None]
  - Urticaria [None]
  - Peripheral swelling [None]
  - Somnolence [None]
  - Decreased appetite [None]
  - Nausea [None]
  - Neck pain [None]

NARRATIVE: CASE EVENT DATE: 20220313
